FAERS Safety Report 5981527-8 (Version None)
Quarter: 2008Q4

REPORT INFORMATION
  Report Type: 
  Country: None (occurrence: None)
  Receive Date: 20081205
  Receipt Date: 20081124
  Transmission Date: 20090506
  Serious: Yes (Other)
  Sender: FDA-Public Use
  Company Number: JP-ROCHE-593607

PATIENT
  Age: 60 Year
  Sex: Female
  Weight: 47 kg

DRUGS (4)
  1. TICLOPIDINE HCL [Suspect]
     Indication: DRUG USE FOR UNKNOWN INDICATION
     Route: 065
     Dates: start: 20050718
  2. HEPARIN SODIUM [Suspect]
     Indication: DRUG USE FOR UNKNOWN INDICATION
     Dosage: 15000 UNITS DAILY
     Route: 041
     Dates: start: 20050718
  3. HEPARIN SODIUM [Suspect]
     Dosage: TOTAL OF 8000 UNITS
     Route: 041
  4. ASPIRIN [Concomitant]
     Dosage: INTERNAL ADMINISTRATION
     Dates: start: 20080718

REACTIONS (3)
  - CARDIOSPASM [None]
  - HEPARIN-INDUCED THROMBOCYTOPENIA [None]
  - THROMBOSIS IN DEVICE [None]
